FAERS Safety Report 7095885-7 (Version None)
Quarter: 2010Q4

REPORT INFORMATION
  Report Type: 
  Country: None (occurrence: None)
  Receive Date: 20101111
  Receipt Date: 20101103
  Transmission Date: 20110411
  Serious: Yes (Other)
  Sender: FDA-Public Use
  Company Number: US-PERRIGO-10US014472

PATIENT
  Age: 36 Month
  Sex: Male
  Weight: 20.408 kg

DRUGS (1)
  1. OXYMETAZOLINE HYDROCHLORIDE 0.05% 304 [Suspect]
     Indication: ACCIDENTAL DRUG INTAKE BY CHILD
     Dosage: UNK, SINGLE
     Route: 048
     Dates: start: 20101103, end: 20101103

REACTIONS (1)
  - ACCIDENTAL EXPOSURE [None]
